FAERS Safety Report 7990772-1 (Version None)
Quarter: 2011Q4

REPORT INFORMATION
  Report Type: 
  Country: None (occurrence: None)
  Receive Date: 20111219
  Receipt Date: 20111219
  Transmission Date: 20120403
  Serious: Yes (Life-Threatening, Hospitalization, Other)
  Sender: FDA-Public Use
  Company Number: None

PATIENT
  Age: 42 Year
  Sex: Male
  Weight: 70.306 kg

DRUGS (1)
  1. LISINOPRIL AND HYDROCHLOROTHIAZIDE [Suspect]
     Indication: DRUG HYPERSENSITIVITY
     Dosage: 1 20-25 MG TABLET
     Route: 048
     Dates: start: 20111205, end: 20111206

REACTIONS (5)
  - APHASIA [None]
  - LIP SWELLING [None]
  - SWELLING [None]
  - PRURITUS [None]
  - SWOLLEN TONGUE [None]
